FAERS Safety Report 9660806 (Version 1)
Quarter: 2013Q4

REPORT INFORMATION
  Report Type: Spontaneous
  Country: IT (occurrence: IT)
  Receive Date: 20131031
  Receipt Date: 20131031
  Transmission Date: 20140711
  Serious: Yes (Other)
  Sender: FDA-Public Use
  Company Number: IT-ELI_LILLY_AND_COMPANY-IT201310007714

PATIENT
  Sex: Female
  Weight: 55 kg

DRUGS (2)
  1. EFIENT [Suspect]
     Indication: PERCUTANEOUS CORONARY INTERVENTION
     Dosage: 10 MG, UNK
  2. EFIENT [Suspect]
     Dosage: 5 MG, UNK

REACTIONS (3)
  - Sepsis [Unknown]
  - Bronchopneumonia [Unknown]
  - Weight decreased [Recovering/Resolving]
